FAERS Safety Report 6825625-5 (Version None)
Quarter: 2010Q3

REPORT INFORMATION
  Report Type: 
  Country: None (occurrence: None)
  Receive Date: 20100708
  Receipt Date: 20070228
  Transmission Date: 20110219
  Serious: No
  Sender: FDA-Public Use
  Company Number: US-PFIZER INC-2006152043

PATIENT
  Sex: Female
  Weight: 77.11 kg

DRUGS (7)
  1. CHANTIX [Suspect]
     Indication: SMOKING CESSATION THERAPY
     Route: 048
     Dates: start: 20061201
  2. EVISTA [Concomitant]
  3. SYNTHROID [Concomitant]
     Indication: THYROID DISORDER
  4. LIPITOR [Concomitant]
  5. NEURONTIN [Concomitant]
  6. RISPERDAL [Concomitant]
  7. ELAVIL [Concomitant]

REACTIONS (2)
  - HYPERSENSITIVITY [None]
  - SWELLING [None]
